FAERS Safety Report 16905629 (Version 2)
Quarter: 2020Q3

REPORT INFORMATION
  Report Type: Report from Study
  Country: GB (occurrence: GB)
  Receive Date: 20191010
  Receipt Date: 20200318
  Transmission Date: 20201105
  Serious: Yes (Hospitalization)
  Sender: FDA-Public Use
  Company Number: GB-JNJFOC-20191004273

PATIENT
  Age: 63 Year
  Sex: Female

DRUGS (16)
  1. BORTEZOMIB. [Suspect]
     Active Substance: BORTEZOMIB
     Indication: PLASMA CELL MYELOMA
     Dosage: DAY 1 AND 15?MOST RECENT DOSE OF ADMINISTERED 22?JAN?2019
     Route: 058
     Dates: start: 20180410
  2. BORTEZOMIB. [Suspect]
     Active Substance: BORTEZOMIB
     Indication: PLASMA CELL LEUKAEMIA
  3. CYCLOPHOSPHAMIDE. [Suspect]
     Active Substance: CYCLOPHOSPHAMIDE
     Indication: PLASMA CELL LEUKAEMIA
     Dosage: DAY 1? DAY 8?MOST RECENT DOSE ADMINISTERED ON 19?JUN?2018
     Route: 048
     Dates: start: 20180410
  4. DARATUMUMAB [Suspect]
     Active Substance: DARATUMUMAB
     Indication: PLASMA CELL LEUKAEMIA
  5. MELPHALAN. [Suspect]
     Active Substance: MELPHALAN
     Indication: PLASMA CELL LEUKAEMIA
  6. DEXAMETHASONE. [Suspect]
     Active Substance: DEXAMETHASONE
     Indication: PLASMA CELL LEUKAEMIA
  7. CYCLOPHOSPHAMIDE. [Suspect]
     Active Substance: CYCLOPHOSPHAMIDE
     Indication: PLASMA CELL LEUKAEMIA
  8. FILGRASTIM [Suspect]
     Active Substance: FILGRASTIM
     Indication: PLASMA CELL MYELOMA
     Dosage: MOST RECENT DOSE ADMINISTERED ON 19?JUL?2018?DAY 1 AND 10 PRE HARVEST
     Route: 058
     Dates: start: 20180710
  9. MELPHALAN. [Suspect]
     Active Substance: MELPHALAN
     Indication: PLASMA CELL MYELOMA
     Dosage: MOST RECENT DOSE ADMINISTERED ON 07?AUG?2018?DAY 1 ASTC
     Route: 058
     Dates: start: 20180807
  10. LENALIDOMIDE [Suspect]
     Active Substance: LENALIDOMIDE
     Indication: PLASMA CELL LEUKAEMIA
  11. CYCLOPHOSPHAMIDE. [Suspect]
     Active Substance: CYCLOPHOSPHAMIDE
     Indication: PLASMA CELL MYELOMA
  12. CYCLOPHOSPHAMIDE. [Suspect]
     Active Substance: CYCLOPHOSPHAMIDE
     Indication: PLASMA CELL MYELOMA
     Dosage: MOST RECENT DOSE ADMINISTERED ON 09?JUL?2019?ONCE PRIMING PRE ASCT
     Route: 042
     Dates: start: 20180709
  13. FILGRASTIM [Suspect]
     Active Substance: FILGRASTIM
     Indication: PLASMA CELL LEUKAEMIA
  14. LENALIDOMIDE [Suspect]
     Active Substance: LENALIDOMIDE
     Indication: PLASMA CELL MYELOMA
     Dosage: MOST RECENT DOSE ADMINISTERED ON 26?SEP?2019?DAY 1?14
     Route: 048
     Dates: start: 20190410
  15. DARATUMUMAB [Suspect]
     Active Substance: DARATUMUMAB
     Indication: PLASMA CELL MYELOMA
     Dosage: MOST RECENT DOSE OF ADMINISTERED 10?SEP?2019
     Route: 042
     Dates: start: 20180410
  16. DEXAMETHASONE. [Suspect]
     Active Substance: DEXAMETHASONE
     Indication: PLASMA CELL MYELOMA
     Dosage: MOST RECENT DOSE ADMINISTERED ON 07?MAY?2019?DAY 1, 8, 15, 25
     Route: 048
     Dates: start: 20180410

REACTIONS (1)
  - Pneumonia [Recovered/Resolved]

NARRATIVE: CASE EVENT DATE: 20190928
